FAERS Safety Report 7464711-6 (Version None)
Quarter: 2011Q2

REPORT INFORMATION
  Report Type: 
  Country: None (occurrence: None)
  Receive Date: 20110509
  Receipt Date: 20110429
  Transmission Date: 20111010
  Serious: Yes (Disabling)
  Sender: FDA-Public Use
  Company Number: US-US-EMD SERONO, INC.-7056940

PATIENT
  Sex: Male

DRUGS (2)
  1. REBIF [Suspect]
     Indication: PROGRESSIVE RELAPSING MULTIPLE SCLEROSIS
     Route: 058
     Dates: start: 20110124
  2. CYTOXAN [Concomitant]
     Dates: start: 20110101

REACTIONS (3)
  - MONOPLEGIA [None]
  - MUSCULAR WEAKNESS [None]
  - HYPOAESTHESIA [None]
